FAERS Safety Report 18425269 (Version 1)
Quarter: 2020Q4

REPORT INFORMATION
  Report Type: Spontaneous
  Country: US (occurrence: US)
  Receive Date: 20201023
  Receipt Date: 20201023
  Transmission Date: 20210114
  Serious: Yes (Hospitalization, Other)
  Sender: FDA-Public Use
  Company Number: None

PATIENT
  Age: 67 Year
  Sex: Female
  Weight: 66 kg

DRUGS (1)
  1. HEPARIN [Suspect]
     Active Substance: HEPARIN SODIUM
     Indication: CORONARY ARTERY BYPASS
     Dosage: OTHER FREQUENCY:DURING PROCEDUCE;?
     Dates: start: 20200928, end: 20200928

REACTIONS (3)
  - Electrocardiogram ST segment elevation [None]
  - Vascular graft occlusion [None]
  - Cardiac procedure complication [None]

NARRATIVE: CASE EVENT DATE: 20200929
